FAERS Safety Report 4655575-4 (Version None)
Quarter: 2005Q2

REPORT INFORMATION
  Report Type: 
  Country: None (occurrence: None)
  Receive Date: 20050505
  Receipt Date: 20050427
  Transmission Date: 20051028
  Serious: Yes (Hospitalization, Other)
  Sender: FDA-Public Use
  Company Number: 2005066794

PATIENT
  Age: 68 Year
  Weight: 63.9572 kg

DRUGS (7)
  1. LIPITOR [Suspect]
     Indication: CAROTID ARTERY OCCLUSION
     Dosage: 10 MG (10 MG, 1 IN 1 D),
     Dates: start: 20050416
  2. NORVASC [Suspect]
     Indication: HYPERTENSION
     Dosage: 5 MG (5 MG, 1 IN 1 D)
     Dates: start: 20020101
  3. CADUET [Suspect]
     Indication: HYPERTENSION
     Dosage: 5MG/10MG
  4. COLESTIPOL HYDROCHLORIDE (COLESTIPOL HYDROCHLORIDE) [Concomitant]
  5. LIBRAX [Suspect]
  6. TRANYLCYPROMINE SULFATE (TRANYLCYPROMINE SULFATE) [Concomitant]
  7. LATANOPROST [Concomitant]

REACTIONS (7)
  - BLOOD CHOLESTEROL INCREASED [None]
  - BLOOD PRESSURE INCREASED [None]
  - BLOOD TRIGLYCERIDES INCREASED [None]
  - CAROTID ARTERY OCCLUSION [None]
  - LOW DENSITY LIPOPROTEIN INCREASED [None]
  - PAIN IN EXTREMITY [None]
  - PANCREATITIS [None]
